FAERS Safety Report 22929269 (Version 2)
Quarter: 2024Q3

REPORT INFORMATION
  Report Type: Spontaneous
  Country: PT (occurrence: PT)
  Receive Date: 20230911
  Receipt Date: 20240923
  Transmission Date: 20241017
  Serious: Yes (Hospitalization, Other)
  Sender: Atnahs Healthcare
  Company Number: PT-TECNIFAR-000126

PATIENT
  Age: 77 Year
  Sex: Male

DRUGS (2)
  1. NAPROXEN [Suspect]
     Active Substance: NAPROXEN
     Indication: Arthralgia
  2. NAPROXEN [Suspect]
     Active Substance: NAPROXEN
     Indication: Arthropathy

REACTIONS (8)
  - Pericardial effusion [Recovered/Resolved]
  - Eosinophilic pleural effusion [Recovered/Resolved]
  - Pulmonary eosinophilia [Recovered/Resolved]
  - Pericarditis [Recovered/Resolved]
  - Eosinophilia [Recovered/Resolved]
  - Cough [Recovered/Resolved]
  - Dyspnoea [Recovered/Resolved]
  - Fatigue [Unknown]
